FAERS Safety Report 6880319-5 (Version None)
Quarter: 2010Q3

REPORT INFORMATION
  Report Type: 
  Country: None (occurrence: None)
  Receive Date: 20100728
  Receipt Date: 20100621
  Transmission Date: 20110219
  Serious: Yes (Other)
  Sender: FDA-Public Use
  Company Number: US-SANOFI-AVENTIS-2010SA040827

PATIENT
  Age: 73 Year
  Sex: Female
  Weight: 59 kg

DRUGS (12)
  1. GLYBURIDE [Suspect]
     Indication: DIABETES MELLITUS
     Route: 048
     Dates: start: 20090901, end: 20091001
  2. METFORMIN HYDROCHLORIDE [Suspect]
     Indication: BLOOD GLUCOSE INCREASED
     Route: 048
     Dates: start: 20090201
  3. METFORMIN HYDROCHLORIDE [Suspect]
     Indication: DIABETES MELLITUS
     Route: 048
     Dates: start: 20090201
  4. METFORMIN HYDROCHLORIDE [Suspect]
     Route: 048
     Dates: start: 20090727, end: 20090921
  5. METFORMIN HYDROCHLORIDE [Suspect]
     Route: 048
     Dates: start: 20090727, end: 20090921
  6. LISINOPRIL [Suspect]
     Dosage: TAKING FOR MANY YEARS
     Route: 048
  7. COD LIVER OIL [Concomitant]
     Dates: start: 20080101
  8. ALL OTHER NON-THERAPEUTIC PRODUCTS [Concomitant]
  9. ALL OTHER NON-THERAPEUTIC PRODUCTS [Concomitant]
  10. POLYETHYLENE GLYCOL [Concomitant]
  11. CALCIUM [Concomitant]
  12. NASACORT AQ [Concomitant]

REACTIONS (2)
  - DEAFNESS [None]
  - DEAFNESS NEUROSENSORY [None]
